FAERS Safety Report 8818434 (Version 3)
Quarter: 2013Q3

REPORT INFORMATION
  Report Type: Report from Study
  Country: DE (occurrence: DE)
  Receive Date: 20121001
  Receipt Date: 20130917
  Transmission Date: 20140515
  Serious: Yes (Hospitalization)
  Sender: FDA-Public Use
  Company Number: DE-ELI_LILLY_AND_COMPANY-DE201209005998

PATIENT
  Sex: Female

DRUGS (6)
  1. TERIPARATIDE [Suspect]
     Indication: OSTEOPOROSIS
     Dosage: UNK, QD
     Route: 058
     Dates: start: 20120627, end: 201305
  2. TERIPARATIDE [Suspect]
     Dosage: UNK, QD
     Route: 058
     Dates: start: 201306, end: 20130804
  3. PROVAS                             /00641902/ [Concomitant]
  4. ISCOVER [Concomitant]
  5. METOPROLOL [Concomitant]
  6. MAGNESIUM [Concomitant]

REACTIONS (4)
  - Arrhythmia [Recovered/Resolved]
  - Heart rate increased [Recovered/Resolved]
  - Muscle twitching [Recovered/Resolved]
  - Muscular weakness [Recovered/Resolved]
